FAERS Safety Report 7699463-8 (Version None)
Quarter: 2011Q3

REPORT INFORMATION
  Report Type: 
  Country: None (occurrence: None)
  Receive Date: 20110820
  Receipt Date: 20101214
  Transmission Date: 20111222
  Serious: No
  Sender: FDA-Public Use
  Company Number: US-ALLERGAN-1016234US

PATIENT
  Age: 93 Year
  Sex: Male

DRUGS (3)
  1. OXYCONTIN [Concomitant]
     Indication: KNEE ARTHROPLASTY
  2. OXYCODONE HCL [Concomitant]
     Indication: KNEE ARTHROPLASTY
  3. SANCTURA XR [Suspect]
     Indication: NEPHROLITHIASIS
     Dosage: 60 MG, SINGLE
     Route: 048
     Dates: start: 20101213

REACTIONS (1)
  - VOMITING [None]
